FAERS Safety Report 6902024-9 (Version None)
Quarter: 2010Q3

REPORT INFORMATION
  Report Type: 
  Country: None (occurrence: None)
  Receive Date: 20100803
  Receipt Date: 20080414
  Transmission Date: 20110219
  Serious: No
  Sender: FDA-Public Use
  Company Number: US-PFIZER INC-2008033070

PATIENT
  Sex: Female
  Weight: 68 kg

DRUGS (3)
  1. LYRICA [Suspect]
     Indication: SCIATICA
     Route: 048
     Dates: start: 20080313, end: 20080413
  2. TRAMADOL HYDROCHLORIDE [Concomitant]
  3. LIPITOR [Concomitant]

REACTIONS (6)
  - BURNING SENSATION [None]
  - FEELING HOT [None]
  - INSOMNIA [None]
  - NAUSEA [None]
  - RESTLESSNESS [None]
  - WITHDRAWAL SYNDROME [None]
